FAERS Safety Report 15363428 (Version 1)
Quarter: 2018Q3

REPORT INFORMATION
  Report Type: Spontaneous
  Country: US (occurrence: US)
  Receive Date: 20180831
  Receipt Date: 20180831
  Transmission Date: 20181010
  Serious: Yes (Other)
  Sender: FDA-Public Use
  Company Number: None

PATIENT
  Age: 61 Year
  Sex: Female
  Weight: 136.08 kg

DRUGS (8)
  1. DULOXETINE DR [Concomitant]
     Active Substance: DULOXETINE
  2. SIMVASTATIN. [Concomitant]
     Active Substance: SIMVASTATIN
  3. CELECOXIB. [Concomitant]
     Active Substance: CELECOXIB
  4. LOSARTAN. [Concomitant]
     Active Substance: LOSARTAN
  5. GABAPENTIN. [Concomitant]
     Active Substance: GABAPENTIN
  6. D3 SUPPLEMENT VITAMIN [Concomitant]
  7. TIZANIDINE. [Concomitant]
     Active Substance: TIZANIDINE
  8. VALSARTAN 80MG TABLETS [Suspect]
     Active Substance: VALSARTAN
     Indication: HYPERTENSION
     Dosage: ?          QUANTITY:1 DF DOSAGE FORM;?
     Route: 048
     Dates: start: 20170603, end: 20180701

REACTIONS (2)
  - Headache [None]
  - Presyncope [None]

NARRATIVE: CASE EVENT DATE: 20180701
